FAERS Safety Report 16072557 (Version 1)
Quarter: 2019Q1

REPORT INFORMATION
  Report Type: Report from Study
  Country: None (occurrence: ES)
  Receive Date: 20190314
  Receipt Date: 20190314
  Transmission Date: 20190418
  Serious: Yes (Death, Other)
  Sender: FDA-Public Use
  Company Number: ES-ABBVIE-19S-144-2693206-00

PATIENT
  Age: 59 Year
  Sex: Male
  Weight: 66 kg

DRUGS (1)
  1. DUODOPA [Suspect]
     Active Substance: CARBIDOPA\LEVODOPA
     Indication: PARKINSON^S DISEASE
     Route: 050
     Dates: start: 20180412

REACTIONS (10)
  - Multiple organ dysfunction syndrome [Fatal]
  - Intestinal obstruction [Fatal]
  - Constipation [Recovering/Resolving]
  - Stoma site erythema [Unknown]
  - Intestinal perforation [Fatal]
  - Faecaloma [Recovering/Resolving]
  - Stoma site pain [Recovered/Resolved]
  - Device issue [Recovered/Resolved]
  - Gastrointestinal stoma complication [Unknown]
  - Cardiac arrest [Fatal]

NARRATIVE: CASE EVENT DATE: 20190225
